FAERS Safety Report 23240025 (Version 1)
Quarter: 2023Q4

REPORT INFORMATION
  Report Type: Spontaneous
  Country: US (occurrence: US)
  Receive Date: 20231129
  Receipt Date: 20231129
  Transmission Date: 20240109
  Serious: Yes (Life-Threatening, Hospitalization, Disabling, Other)
  Sender: FDA-Public Use
  Company Number: US-MLMSERVICE-20231108-4648263-1

PATIENT
  Age: 50 Year
  Sex: Female

DRUGS (2)
  1. MYCOPHENOLIC ACID [Suspect]
     Active Substance: MYCOPHENOLIC ACID
     Indication: Immunosuppressant drug therapy
     Dosage: UNKNOWN
     Route: 065
  2. TACROLIMUS [Suspect]
     Active Substance: TACROLIMUS
     Indication: Immunosuppressant drug therapy
     Dosage: UNKNOWN
     Route: 065

REACTIONS (5)
  - Cerebellar atrophy [Not Recovered/Not Resolved]
  - Immune reconstitution inflammatory syndrome [Recovering/Resolving]
  - West Nile viral infection [Recovering/Resolving]
  - Encephalomyelitis viral [Recovering/Resolving]
  - Acute respiratory failure [Recovering/Resolving]
